FAERS Safety Report 6233018-7 (Version None)
Quarter: 2009Q2

REPORT INFORMATION
  Report Type: 
  Country: None (occurrence: None)
  Receive Date: 20090617
  Receipt Date: 20080110
  Transmission Date: 20091009
  Serious: Yes (Life-Threatening)
  Sender: FDA-Public Use
  Company Number: B0503712A

PATIENT
  Sex: Male

DRUGS (14)
  1. TAGAMET [Suspect]
     Dosage: 1CAP PER DAY
     Route: 048
     Dates: start: 20071001, end: 20071001
  2. RENITEC [Suspect]
     Indication: HYPERTENSION
     Route: 048
     Dates: start: 20061001
  3. MEGLUMINE SODIUM AMIDOTRIZOATE [Suspect]
     Indication: DRUG USE FOR UNKNOWN INDICATION
     Route: 050
     Dates: start: 20071001, end: 20071001
  4. CELOCURINE [Suspect]
     Route: 042
     Dates: start: 20071001, end: 20071001
  5. PROPOFOL [Suspect]
     Indication: DRUG USE FOR UNKNOWN INDICATION
     Route: 042
     Dates: start: 20071001, end: 20071001
  6. ACETAMINOPHEN [Suspect]
     Indication: DRUG USE FOR UNKNOWN INDICATION
     Route: 042
     Dates: start: 20071001, end: 20071001
  7. CYCLOSPORINE [Concomitant]
  8. UNKNOWN DRUG [Concomitant]
  9. CITALOPRAM HYDROBROMIDE [Concomitant]
  10. PREDNISONE [Concomitant]
  11. NICARDIPINE HYDROCHLORIDE [Concomitant]
  12. BISOPROLOL [Concomitant]
  13. VALACYCLOVIR HCL [Concomitant]
  14. PANTOPRAZOLE SODIUM [Concomitant]

REACTIONS (5)
  - ANGIOEDEMA [None]
  - DYSPNOEA [None]
  - LIP OEDEMA [None]
  - TONGUE OEDEMA [None]
  - WHEEZING [None]
